FAERS Safety Report 6807077-4 (Version None)
Quarter: 2010Q2

REPORT INFORMATION
  Report Type: 
  Country: None (occurrence: None)
  Receive Date: 20100629
  Receipt Date: 20080624
  Transmission Date: 20101027
  Serious: No
  Sender: FDA-Public Use
  Company Number: US-PFIZER INC-2008047837

PATIENT
  Sex: Female
  Weight: 97.52 kg

DRUGS (2)
  1. ZYVOX [Suspect]
     Indication: STAPHYLOCOCCAL INFECTION
     Dates: start: 20080501, end: 20080601
  2. ANTIBIOTICS [Concomitant]
     Route: 042

REACTIONS (3)
  - DIARRHOEA [None]
  - FEELING ABNORMAL [None]
  - PRURITUS GENITAL [None]
